FAERS Safety Report 5822792-7 (Version None)
Quarter: 2008Q3

REPORT INFORMATION
  Report Type: 
  Country: None (occurrence: None)
  Receive Date: 20080725
  Receipt Date: 20080722
  Transmission Date: 20090109
  Serious: Yes (Hospitalization, Disabling)
  Sender: FDA-Public Use
  Company Number: DE-AVENTIS-200811977DE

PATIENT
  Age: 68 Year
  Sex: Male

DRUGS (4)
  1. TAXOTERE [Suspect]
     Route: 041
     Dates: start: 20080502, end: 20080502
  2. FLUOROURACIL [Suspect]
     Route: 041
     Dates: start: 20080502, end: 20080502
  3. FOLINSAEURE [Suspect]
     Route: 041
     Dates: start: 20080502, end: 20080502
  4. OXALIPLATIN [Suspect]
     Route: 041
     Dates: start: 20080502, end: 20080502

REACTIONS (4)
  - ANAEMIA [None]
  - HYPOKALAEMIA [None]
  - MUSCULAR WEAKNESS [None]
  - OEDEMA [None]
